FAERS Safety Report 8489399-7 (Version None)
Quarter: 2012Q3

REPORT INFORMATION
  Report Type: 
  Country: None (occurrence: None)
  Receive Date: 20120705
  Receipt Date: 20120624
  Transmission Date: 20120928
  Serious: Yes (Other)
  Sender: FDA-Public Use
  Company Number: CA-ELI_LILLY_AND_COMPANY-CA201206007796

PATIENT
  Age: 70 Year
  Sex: Female

DRUGS (4)
  1. FORTEO [Suspect]
     Indication: OSTEOPOROSIS
     Dosage: 20 UG, QD
     Route: 058
     Dates: start: 20101015
  2. SYNTHROID [Concomitant]
  3. ELAVIL [Concomitant]
  4. VITAMIN D [Concomitant]

REACTIONS (3)
  - PELVIC FRACTURE [None]
  - FALL [None]
  - FRACTURED COCCYX [None]
